FAERS Safety Report 13392057 (Version 1)
Quarter: 2017Q1

REPORT INFORMATION
  Report Type: Spontaneous
  Country: US (occurrence: US)
  Receive Date: 20170331
  Receipt Date: 20170331
  Transmission Date: 20170429
  Serious: No
  Sender: FDA-Public Use
  Company Number: US-MYLANLABS-2016M1022120

PATIENT
  Age: 67 Year
  Sex: Female
  Weight: 65.31 kg

DRUGS (2)
  1. FENTANYL TRANSDERMAL SYSTEM [Suspect]
     Active Substance: FENTANYL
     Indication: PAIN
     Dosage: 50 ?G/ QH, CHANGES Q72H
     Route: 062
  2. PERCOCET                           /00446701/ [Concomitant]
     Active Substance: ACETAMINOPHEN\OXYCODONE HYDROCHLORIDE\OXYCODONE TEREPHTHALATE
     Indication: BREAKTHROUGH PAIN
     Dosage: 7.5 MG, TID

REACTIONS (3)
  - Drug ineffective [Not Recovered/Not Resolved]
  - Application site erythema [Recovered/Resolved]
  - Application site urticaria [Recovered/Resolved]

NARRATIVE: CASE EVENT DATE: 201604
